FAERS Safety Report 6414426-8 (Version None)
Quarter: 2009Q4

REPORT INFORMATION
  Report Type: 
  Country: None (occurrence: None)
  Receive Date: 20091026
  Receipt Date: 20091012
  Transmission Date: 20100525
  Serious: Yes (Other)
  Sender: FDA-Public Use
  Company Number: PHHY2009DE44803

PATIENT
  Sex: Male

DRUGS (6)
  1. RASILEZ HCT [Suspect]
     Indication: HYPERTENSION
     Dosage: 300/12.5 MG
     Route: 048
     Dates: start: 20090701, end: 20091001
  2. ASPIRIN TAB [Concomitant]
     Dosage: 100 MG
  3. EBRANTIL [Concomitant]
  4. SOTALEX [Concomitant]
  5. TARKA [Concomitant]
     Dosage: UNK
     Dates: end: 20090701
  6. SORTIS [Concomitant]

REACTIONS (1)
  - GLYCOSYLATED HAEMOGLOBIN INCREASED [None]
